FAERS Safety Report 5643775-6 (Version None)
Quarter: 2008Q1

REPORT INFORMATION
  Report Type: 
  Country: None (occurrence: None)
  Receive Date: 20080131
  Receipt Date: 20071022
  Transmission Date: 20080703
  Serious: Yes (Other)
  Sender: FDA-Public Use
  Company Number: 163-21880-07101305

PATIENT
  Age: 63 Year
  Sex: Male

DRUGS (13)
  1. REVLIMID [Suspect]
     Indication: MULTIPLE MYELOMA
     Dosage: 15 MG, QD, ORAL ; 25 MG, QD, ORAL
     Route: 048
     Dates: start: 20070601, end: 20070101
  2. REVLIMID [Suspect]
     Indication: MULTIPLE MYELOMA
     Dosage: 15 MG, QD, ORAL ; 25 MG, QD, ORAL
     Route: 048
     Dates: start: 20070101
  3. ALTACE [Concomitant]
  4. ASPIRIN [Concomitant]
  5. COREG [Concomitant]
  6. IMDUR [Concomitant]
  7. POTASSIUM CHLORIDE [Concomitant]
  8. LASIX [Concomitant]
  9. MAGNESIUM OXIDE (MAGNESIUM OXIDE) [Concomitant]
  10. PLAVIX [Concomitant]
  11. ZANTAC [Concomitant]
  12. RIFADIN [Concomitant]
  13. LIPITOR [Concomitant]

REACTIONS (1)
  - STAPHYLOCOCCAL INFECTION [None]
